FAERS Safety Report 4614252-6 (Version None)
Quarter: 2005Q1

REPORT INFORMATION
  Report Type: 
  Country: None (occurrence: None)
  Receive Date: 20050321
  Receipt Date: 20050228
  Transmission Date: 20050727
  Serious: Yes (Other)
  Sender: FDA-Public Use
  Company Number: BR-ABBOTT-05P-020-0292951-00

PATIENT
  Sex: Male

DRUGS (14)
  1. KALETRA [Suspect]
     Indication: HIV INFECTION
     Dosage: LOPINAVIR 1066.4 MILLIGRAMS AND RITONAVIR 266.4 MILLIGRAMS
     Route: 048
     Dates: start: 20040503, end: 20040825
  2. KALETRA [Suspect]
     Dates: start: 20040908
  3. CAPRAVIRINE [Suspect]
     Indication: HIV INFECTION
     Route: 048
     Dates: start: 20040803, end: 20040825
  4. CAPRAVIRINE [Suspect]
     Dates: start: 20040915
  5. TENOFOVIR [Concomitant]
     Indication: HIV INFECTION
     Route: 048
     Dates: start: 20040503, end: 20040825
  6. LAMIVUDINE [Concomitant]
     Indication: HIV INFECTION
     Route: 048
     Dates: start: 20040503, end: 20040825
  7. LAMIVUDINE [Concomitant]
     Dates: start: 20040908
  8. DIDANOSINE [Concomitant]
     Indication: HIV INFECTION
     Route: 048
     Dates: start: 20040503, end: 20040825
  9. DIDANOSINE [Concomitant]
     Dates: start: 20040908
  10. ENALAPRIL [Concomitant]
     Indication: HYPERTENSION
     Route: 048
     Dates: start: 19991111
  11. ABACAVIR [Concomitant]
     Indication: DRUG USE FOR UNKNOWN INDICATION
  12. ABACAVIR [Concomitant]
     Dates: start: 20040909
  13. ZIDOVUDINE [Concomitant]
     Indication: DRUG USE FOR UNKNOWN INDICATION
  14. ZIDOVUDINE [Concomitant]
     Dates: start: 20040909

REACTIONS (2)
  - NEPHROPATHY TOXIC [None]
  - PROTEINURIA [None]
